FAERS Safety Report 25230251 (Version 1)
Quarter: 2025Q2

REPORT INFORMATION
  Report Type: Spontaneous
  Country: US (occurrence: US)
  Receive Date: 20250423
  Receipt Date: 20250423
  Transmission Date: 20250717
  Serious: No
  Sender: BIOGEN
  Company Number: US-BIOGEN-2025BI01303389

PATIENT
  Age: 45 Year
  Sex: Female

DRUGS (3)
  1. TECFIDERA [Suspect]
     Active Substance: DIMETHYL FUMARATE
     Indication: Relapsing multiple sclerosis
     Dosage: TAKE 1 CAPSULE BY MOUTH EVERY 12 HOURS.
     Route: 050
     Dates: start: 20190422
  2. GABAPENTIN [Concomitant]
     Active Substance: GABAPENTIN
     Route: 050
  3. SLYND [Concomitant]
     Active Substance: DROSPIRENONE
     Route: 050

REACTIONS (3)
  - Intentional product misuse [Unknown]
  - Gastrointestinal disorder [Unknown]
  - Flushing [Unknown]

NARRATIVE: CASE EVENT DATE: 20250301
